FAERS Safety Report 18576503 (Version 3)
Quarter: 2023Q4

REPORT INFORMATION
  Report Type: Spontaneous
  Country: FR (occurrence: FR)
  Receive Date: 20201203
  Receipt Date: 20231013
  Transmission Date: 20240110
  Serious: Yes (Hospitalization, Other)
  Sender: FDA-Public Use
  Company Number: None

PATIENT
  Age: 83 Year
  Sex: Female
  Weight: 86 kg

DRUGS (8)
  1. FLUCONAZOLE [Suspect]
     Active Substance: FLUCONAZOLE
     Indication: Prophylaxis
     Dosage: 200 MILLIGRAM, QD
     Route: 042
     Dates: start: 20201006
  2. FENTANYL [Suspect]
     Active Substance: FENTANYL
     Indication: Analgesic therapy
     Dosage: 12 MICROGRAM, QH
     Route: 065
     Dates: start: 20201002
  3. PAROXETINE [Suspect]
     Active Substance: PAROXETINE
     Indication: Depression
     Dosage: 20 MILLIGRAM, QD
     Route: 048
     Dates: start: 20201006
  4. MEROPENEM [Suspect]
     Active Substance: MEROPENEM
     Indication: Septic shock
     Dosage: 2 GRAM, QD
     Route: 042
     Dates: start: 20201006
  5. PANTOPRAZOLE [Suspect]
     Active Substance: PANTOPRAZOLE
     Indication: Prophylaxis
     Dosage: 40 MILLIGRAM, QD
     Route: 048
     Dates: start: 20201002
  6. CALCIPARINE [Suspect]
     Active Substance: HEPARIN CALCIUM
     Indication: Prophylaxis
     Dosage: 5000 INTERNATIONAL UNIT, QD
     Route: 058
     Dates: start: 20201002
  7. MORPHINE [Suspect]
     Active Substance: MORPHINE
     Indication: Analgesic therapy
     Dosage: 20 MILLIGRAM, QD
     Route: 065
     Dates: start: 20201002
  8. DIGOXIN [Concomitant]
     Active Substance: DIGOXIN
     Dosage: UNK
     Route: 065

REACTIONS (1)
  - Thrombocytopenia [Unknown]

NARRATIVE: CASE EVENT DATE: 20201015
